FAERS Safety Report 11879141 (Version 2)
Quarter: 2015Q4

REPORT INFORMATION
  Report Type: Spontaneous
  Country: ES (occurrence: ES)
  Receive Date: 20151230
  Receipt Date: 20151230
  Transmission Date: 20160305
  Serious: Yes (Other)
  Sender: FDA-Public Use
  Company Number: ES-TEVA-621389ISR

PATIENT
  Age: 77 Year
  Sex: Male

DRUGS (4)
  1. ENTACAPONE. [Suspect]
     Active Substance: ENTACAPONE
     Route: 065
  2. CLONAZEPAM. [Suspect]
     Active Substance: CLONAZEPAM
     Route: 065
  3. QUETIAPINE [Suspect]
     Active Substance: QUETIAPINE
     Route: 048
  4. LEVODOPA, BENSERAZIDE [Suspect]
     Active Substance: BENSERAZIDE HYDROCHLORIDE\LEVODOPA
     Route: 065

REACTIONS (2)
  - Wrong drug administered [Unknown]
  - Depressed level of consciousness [Unknown]
